FAERS Safety Report 16848538 (Version 1)
Quarter: 2019Q3

REPORT INFORMATION
  Report Type: Spontaneous
  Country: DE (occurrence: DE)
  Receive Date: 20190925
  Receipt Date: 20190925
  Transmission Date: 20191005
  Serious: Yes (Congenital Anomaly, Other)
  Sender: FDA-Public Use
  Company Number: DE-TEVA-2019-DE-1111780

PATIENT
  Age: 1 Day
  Sex: Female
  Weight: 3.52 kg

DRUGS (8)
  1. HALDOL [Concomitant]
     Active Substance: HALOPERIDOL
     Indication: DEPRESSION
     Route: 064
  2. PIPAMPERONE [Suspect]
     Active Substance: PIPAMPERONE
     Indication: DEPRESSION
     Dosage: 10 [MG/D ]/ UNTIL GW 5 AND AGAIN IN THE THIRD TRIMESTER UNTIL DELIVERY
     Route: 064
  3. LAMOTRIGINE. [Suspect]
     Active Substance: LAMOTRIGINE
     Indication: EPILEPSY
     Dosage: 800 [MG/D (BIS 775 MG/D) ]/ DOSAGE INCREASE FROM 775 MG UP TO 800 MG/D!!
     Route: 064
     Dates: start: 20170512, end: 20180219
  4. VENLAFAXINE [Concomitant]
     Active Substance: VENLAFAXINE HYDROCHLORIDE
     Indication: DEPRESSION
     Dosage: 150 [MG/D ]
     Route: 064
  5. FOLSAURE [Concomitant]
     Active Substance: FOLIC ACID
     Indication: PROPHYLAXIS OF NEURAL TUBE DEFECT
     Route: 064
     Dates: start: 20170512, end: 20180219
  6. TAVOR [Concomitant]
     Indication: DEPRESSION
     Dosage: 1 [MG/D (BIS 0.5 MG/D, BEI BEDARF) ]/ OCCASIONALLY
     Route: 064
  7. CITALOPRAM [Suspect]
     Active Substance: CITALOPRAM HYDROBROMIDE
     Indication: DEPRESSION
     Dosage: 20 [MG/D ]/ UNTIL GW 5 AND THEN AGAIN FROM GW 31.
     Route: 064
  8. RISPERIDON HEXAL [Suspect]
     Active Substance: RISPERIDONE
     Indication: DEPRESSION
     Dosage: 2 [MG/D (BIS 1 MG/D) ]/ UNTIL GW 5 (1 MG/D) AND THEN AGAIN FROM GW 31 (2 MG/D).
     Route: 064

REACTIONS (7)
  - Agitation neonatal [Recovered/Resolved]
  - Patent ductus arteriosus [Recovered/Resolved]
  - Respiratory disorder neonatal [Recovered/Resolved]
  - Ventricular septal defect [Not Recovered/Not Resolved]
  - Foetal exposure during pregnancy [Unknown]
  - Congenital coronary artery malformation [Not Recovered/Not Resolved]
  - Atrial septal defect [Not Recovered/Not Resolved]

NARRATIVE: CASE EVENT DATE: 20180219
